FAERS Safety Report 6996429-8 (Version None)
Quarter: 2010Q3

REPORT INFORMATION
  Report Type: 
  Country: None (occurrence: None)
  Receive Date: 20100918
  Receipt Date: 20090303
  Transmission Date: 20110219
  Serious: No
  Sender: FDA-Public Use
  Company Number: US-WYE-H08437709

PATIENT
  Age: 32 Year
  Sex: Female

DRUGS (6)
  1. EFFEXOR XR [Suspect]
     Indication: DEPRESSION
     Dosage: AS HIGH AS 225 MG DAILY BUT MOSTLY WAS 150 MG DAILY
     Route: 048
     Dates: start: 20020101, end: 20040101
  2. EFFEXOR XR [Suspect]
     Indication: ANXIETY
     Route: 048
     Dates: start: 20090101, end: 20090221
  3. EFFEXOR XR [Suspect]
     Route: 048
     Dates: start: 20090222, end: 20090227
  4. EFFEXOR XR [Suspect]
     Dosage: DISCONTINUED FOR 9 MONTHS, THEN RESUMED AT DOSE AS HIGH AS 225 MG DAILY BUT MOSTLY WAS 150 MG DAILY
     Route: 048
     Dates: start: 20040101, end: 20090101
  5. WELLBUTRIN [Suspect]
     Dosage: UNKNOWN
     Dates: start: 20090227, end: 20090303
  6. WELLBUTRIN [Suspect]
     Dosage: UNKNOWN
     Dates: start: 20090227, end: 20090303

REACTIONS (12)
  - ANXIETY [None]
  - CRYING [None]
  - DRUG WITHDRAWAL SYNDROME [None]
  - FORMICATION [None]
  - HEADACHE [None]
  - INSOMNIA [None]
  - IRRITABILITY [None]
  - LOSS OF LIBIDO [None]
  - MALAISE [None]
  - NAUSEA [None]
  - NIGHTMARE [None]
  - PARAESTHESIA [None]
